FAERS Safety Report 5445675-3 (Version None)
Quarter: 2007Q3

REPORT INFORMATION
  Report Type: 
  Country: None (occurrence: None)
  Receive Date: 20070904
  Receipt Date: 20070823
  Transmission Date: 20080115
  Serious: Yes (Other)
  Sender: FDA-Public Use
  Company Number: CHPA2007US09009

PATIENT
  Age: 2 Year

DRUGS (1)
  1. THERAPEUTIC MINERAL ICE (NCH)(MENTHOL) GEL [Suspect]
     Dosage: ONCE, SINGLE
     Dates: start: 20070823, end: 20070823

REACTIONS (2)
  - ACCIDENTAL EXPOSURE [None]
  - CAUSTIC INJURY [None]
